FAERS Safety Report 10561868 (Version 2)
Quarter: 2014Q4

REPORT INFORMATION
  Report Type: Report from Study
  Country: DE (occurrence: DE)
  Receive Date: 20141104
  Receipt Date: 20141104
  Transmission Date: 20150529
  Serious: Yes (Hospitalization)
  Sender: FDA-Public Use
  Company Number: DE-AMGEN-DEUCT2014067708

PATIENT
  Age: 77 Year
  Sex: Female

DRUGS (10)
  1. PCM [Concomitant]
  2. HCT [Concomitant]
     Active Substance: HYDROCHLOROTHIAZIDE
  3. VIGANTOLETTEN ^BAYER^ [Concomitant]
  4. VALSARTAN. [Concomitant]
     Active Substance: VALSARTAN
  5. JODID [Concomitant]
     Active Substance: IODINE
  6. CALCIUM [Concomitant]
     Active Substance: CALCIUM
  7. PREDNISOLON                        /00016201/ [Concomitant]
     Active Substance: PREDNISOLONE
  8. AMLODIPINE [Concomitant]
     Active Substance: AMLODIPINE BESYLATE
  9. ETANERCEPT [Suspect]
     Active Substance: ETANERCEPT
     Indication: RHEUMATOID ARTHRITIS
     Dosage: 25 MG, EVERY 8 DAYS
     Route: 065
     Dates: end: 20140710
  10. EPAMAX [Concomitant]

REACTIONS (2)
  - Drug ineffective [Not Recovered/Not Resolved]
  - Rheumatoid arthritis [Not Recovered/Not Resolved]

NARRATIVE: CASE EVENT DATE: 20140601
